FAERS Safety Report 21447542 (Version 3)
Quarter: 2022Q4

REPORT INFORMATION
  Report Type: Spontaneous
  Country: US (occurrence: US)
  Receive Date: 20221012
  Receipt Date: 20221222
  Transmission Date: 20230112
  Serious: No
  Sender: FDA-Public Use
  Company Number: US-BRISTOL-MYERS SQUIBB COMPANY-USA-20220304004

PATIENT
  Age: 86 Year
  Sex: Female

DRUGS (1)
  1. REVLIMID [Suspect]
     Active Substance: LENALIDOMIDE
     Indication: Myelodysplastic syndrome
     Dosage: THERAPY GIVEN AT A FREQUENCY OF EVERY DAY ON DAYS 1-14 OF A 28-DAY CYCLE. 2 WEEKS ON 2 WEEKS OFF
     Dates: start: 20220224

REACTIONS (8)
  - Chills [Unknown]
  - Product dose omission issue [Unknown]
  - Dyspnoea [Unknown]
  - Night sweats [Unknown]
  - Asthenia [Unknown]
  - Decreased appetite [Unknown]
  - Off label use [Unknown]
  - Illness [Recovered/Resolved]
